FAERS Safety Report 14375427 (Version 2)
Quarter: 2018Q2

REPORT INFORMATION
  Report Type: Spontaneous
  Country: DE (occurrence: DE)
  Receive Date: 20180111
  Receipt Date: 20180504
  Transmission Date: 20180711
  Serious: Yes (Other)
  Sender: FDA-Public Use
  Company Number: DE-BEH-2018086647

PATIENT
  Age: 67 Year
  Sex: Female
  Weight: 70 kg

DRUGS (1)
  1. PRIVIGEN [Suspect]
     Active Substance: HUMAN IMMUNOGLOBULIN G
     Indication: WALDENSTROM^S MACROGLOBULINAEMIA
     Route: 042

REACTIONS (3)
  - Back pain [Recovered/Resolved]
  - Hypertension [Recovered/Resolved]
  - Peripheral coldness [Recovered/Resolved]
